FAERS Safety Report 9495234 (Version 5)
Quarter: 2014Q1

REPORT INFORMATION
  Report Type: Report from Study
  Country: CL (occurrence: CL)
  Receive Date: 20130903
  Receipt Date: 20140303
  Transmission Date: 20141002
  Serious: Yes (Disabling)
  Sender: FDA-Public Use
  Company Number: CL-009507513-1309CHL000769

PATIENT
  Age: 34 Year
  Sex: Male
  Weight: 85.6 kg

DRUGS (16)
  1. RIBAVIRIN [Suspect]
     Indication: CHRONIC HEPATITIS C
     Dosage: 3 CAPSULES, QD
     Route: 048
     Dates: start: 20130402, end: 20130402
  2. RIBAVIRIN [Suspect]
     Dosage: 3 CAPSULES, QAM
     Route: 048
     Dates: start: 20130403, end: 20130415
  3. RIBAVIRIN [Suspect]
     Dosage: 3 CAPSULES, QPM
     Route: 048
     Dates: start: 20130403, end: 20130415
  4. RIBAVIRIN [Suspect]
     Dosage: 3 CAPSULES, QAM
     Route: 048
     Dates: start: 20130416, end: 20130429
  5. RIBAVIRIN [Suspect]
     Dosage: 3 CAPSULES, QPM
     Route: 048
     Dates: start: 20130416, end: 20130429
  6. RIBAVIRIN [Suspect]
     Dosage: 3 CAPSULES, QAM
     Route: 048
     Dates: start: 20130430, end: 20130513
  7. RIBAVIRIN [Suspect]
     Dosage: 3 CAPSULES, QPM
     Route: 048
     Dates: start: 20130430, end: 20130513
  8. RIBAVIRIN [Suspect]
     Dosage: 3 CAPSULES, QAM
     Route: 048
     Dates: start: 20130514, end: 20130527
  9. RIBAVIRIN [Suspect]
     Dosage: 3 CAPSULES, QPM
     Route: 048
     Dates: start: 20130514, end: 20130527
  10. RIBAVIRIN [Suspect]
     Dosage: 3 CAPSULES, QAM
     Route: 048
     Dates: start: 20130528, end: 20130624
  11. RIBAVIRIN [Suspect]
     Dosage: 3 CAPSULES, QPM
     Route: 048
     Dates: start: 20130528, end: 20130624
  12. RIBAVIRIN [Suspect]
     Dosage: 2 CAPSULES, DAILY
     Route: 048
     Dates: start: 20130828, end: 20130828
  13. PEGINTERFERON ALFA-2A [Suspect]
     Indication: CHRONIC HEPATITIS C
     Dosage: 180 MICROGRAM, QW
     Route: 058
     Dates: start: 20130402, end: 20130827
  14. OMEPRAZOLE [Concomitant]
     Indication: GASTROOESOPHAGEAL REFLUX DISEASE
     Dosage: TOTAL DAILY DOSE: 20 MG, QD
     Route: 048
     Dates: start: 201201, end: 20130820
  15. ACETAMINOPHEN [Concomitant]
     Indication: BACK PAIN
     Dosage: TOTAL DAILY DOSE: 500 MG, PRN
     Route: 048
     Dates: start: 200808
  16. DOMPERIDONE [Concomitant]
     Indication: NAUSEA
     Dosage: TOTAL DAILY DOSE 10 MG, BID
     Route: 048
     Dates: start: 20130430

REACTIONS (1)
  - Rash [Recovered/Resolved]
